FAERS Safety Report 5949904-9 (Version None)
Quarter: 2008Q4

REPORT INFORMATION
  Report Type: 
  Country: None (occurrence: None)
  Receive Date: 20081112
  Receipt Date: 20081030
  Transmission Date: 20090506
  Serious: Yes (Hospitalization)
  Sender: FDA-Public Use
  Company Number: GB-ELI_LILLY_AND_COMPANY-GB200811000478

PATIENT
  Age: 40 Year
  Sex: Male

DRUGS (2)
  1. OLANZAPINE [Suspect]
     Indication: BIPOLAR DISORDER
     Dosage: 10 MG, UNK
  2. LITHIUM [Concomitant]
     Dosage: 800 MG, DAILY (1/D)

REACTIONS (1)
  - CHOLELITHIASIS [None]
